FAERS Safety Report 5381367-7 (Version None)
Quarter: 2007Q3

REPORT INFORMATION
  Report Type: 
  Country: None (occurrence: None)
  Receive Date: 20070709
  Receipt Date: 20070629
  Transmission Date: 20080115
  Serious: Yes (Hospitalization)
  Sender: FDA-Public Use
  Company Number: SG-ASTRAZENECA-2007AP03657

PATIENT
  Age: 25056 Day
  Sex: Male
  Weight: 44 kg

DRUGS (6)
  1. IRESSA [Suspect]
     Indication: SQUAMOUS CELL CARCINOMA
     Route: 048
     Dates: start: 20070423, end: 20070617
  2. CISPLATIN [Suspect]
     Indication: SQUAMOUS CELL CARCINOMA
     Dosage: GIVEN ON DAYS 1-4 OF WEEK 1,4 + 7 OF RADIOTHERAPY
     Route: 042
     Dates: start: 20070515, end: 20070518
  3. CISPLATIN [Suspect]
     Route: 042
     Dates: start: 20070606, end: 20070609
  4. RADIOTHERAPY [Suspect]
     Indication: SQUAMOUS CELL CARCINOMA
     Dates: start: 20070519, end: 20070618
  5. PYRIDOXINE HCL [Concomitant]
     Indication: SUPPLEMENTATION THERAPY
     Route: 048
     Dates: start: 20070423, end: 20070618
  6. UREA CREAM [Concomitant]
     Indication: PSORIASIS
     Route: 061
     Dates: start: 20070514, end: 20070618

REACTIONS (2)
  - MUCOSAL INFLAMMATION [None]
  - SEPSIS [None]
